FAERS Safety Report 19945473 (Version 2)
Quarter: 2021Q4

REPORT INFORMATION
  Report Type: Spontaneous
  Country: US (occurrence: US)
  Receive Date: 20211012
  Receipt Date: 20211014
  Transmission Date: 20220303
  Serious: No
  Sender: FDA-Public Use
  Company Number: NVSC2021US232390

PATIENT
  Sex: Female

DRUGS (1)
  1. BIMATOPROST [Suspect]
     Active Substance: BIMATOPROST
     Indication: Product used for unknown indication
     Dosage: 0.3 %, QD (ONCE NIGHTLY)
     Route: 065

REACTIONS (3)
  - Application site reaction [Unknown]
  - Growth of eyelashes [Unknown]
  - Incorrect dose administered [Unknown]
